FAERS Safety Report 13951903 (Version 3)
Quarter: 2017Q4

REPORT INFORMATION
  Report Type: Spontaneous
  Country: CN (occurrence: CN)
  Receive Date: 20170910
  Receipt Date: 20171004
  Transmission Date: 20180320
  Serious: Yes (Hospitalization, Other)
  Sender: FDA-Public Use
  Company Number: CN-MERCK KGAA-2025822

PATIENT
  Age: 16 Year
  Sex: Female

DRUGS (1)
  1. NOVOTHYROX [Suspect]
     Active Substance: LEVOTHYROXINE SODIUM
     Indication: HYPOTHYROIDISM
     Route: 048
     Dates: start: 2011

REACTIONS (3)
  - Anger [Recovered/Resolved]
  - Intentional overdose [Unknown]
  - Thyroid hormones increased [Recovered/Resolved]

NARRATIVE: CASE EVENT DATE: 20170823
